FAERS Safety Report 15346495 (Version 1)
Quarter: 2018Q3

REPORT INFORMATION
  Report Type: Spontaneous
  Country: US (occurrence: US)
  Receive Date: 20180904
  Receipt Date: 20180904
  Transmission Date: 20181010
  Serious: No
  Sender: FDA-Public Use
  Company Number: US-PFIZER INC-2018354861

PATIENT
  Sex: Female

DRUGS (3)
  1. XANAX [Suspect]
     Active Substance: ALPRAZOLAM
     Indication: CEREBRAL DISORDER
  2. XANAX [Suspect]
     Active Substance: ALPRAZOLAM
     Indication: PAIN
  3. XANAX [Suspect]
     Active Substance: ALPRAZOLAM
     Indication: PSYCHOTIC DISORDER
     Dosage: UNK, AS NEEDED
     Dates: start: 2016, end: 2016

REACTIONS (1)
  - Drug ineffective for unapproved indication [Unknown]
